FAERS Safety Report 4276843-4 (Version None)
Quarter: 2004Q1

REPORT INFORMATION
  Report Type: 
  Country: None (occurrence: None)
  Receive Date: 20040120
  Receipt Date: 20040109
  Transmission Date: 20041129
  Serious: Yes (Death)
  Sender: FDA-Public Use
  Company Number: 2003-12-1602

PATIENT
  Age: 59 Year
  Sex: Male
  Weight: 50 kg

DRUGS (14)
  1. REBETOL [Suspect]
     Indication: HEPATITIS C
     Dosage: SEE IMAGE
     Route: 048
     Dates: start: 20030929, end: 20031211
  2. REBETOL [Suspect]
     Indication: HEPATITIS C
     Dosage: SEE IMAGE
     Route: 048
     Dates: start: 20030929, end: 20031219
  3. REBETOL [Suspect]
     Indication: HEPATITIS C
     Dosage: SEE IMAGE
     Route: 048
     Dates: start: 20031212, end: 20031219
  4. INTRON A [Suspect]
     Indication: HEPATITIS C
     Dosage: SEE IMAGE
     Route: 030
     Dates: start: 20030929, end: 20031024
  5. INTRON A [Suspect]
     Indication: HEPATITIS C
     Dosage: SEE IMAGE
     Route: 030
     Dates: start: 20031027, end: 20031114
  6. INTRON A [Suspect]
     Indication: HEPATITIS C
     Dosage: SEE IMAGE
     Route: 030
     Dates: start: 20030929, end: 20031219
  7. INTRON A [Suspect]
     Indication: HEPATITIS C
     Dosage: SEE IMAGE
     Route: 030
     Dates: start: 20031117, end: 20031219
  8. FLUVOXAMINE MALEATE [Concomitant]
  9. SULPRID [Concomitant]
  10. GLYCYRON [Concomitant]
  11. LIVER HYDROSYLATE [Concomitant]
  12. PANVITAN [Concomitant]
  13. MOSAPRIDE CITRATE (BENZAMIDE CITRATE) [Concomitant]
  14. MIANSERIN HYDROCHLORIDE [Concomitant]

REACTIONS (7)
  - ANAEMIA [None]
  - CARDIO-RESPIRATORY ARREST [None]
  - CEREBRAL INFARCTION [None]
  - DECREASED ACTIVITY [None]
  - DECREASED APPETITE [None]
  - DEHYDRATION [None]
  - DEPRESSION [None]
